FAERS Safety Report 4267126-7 (Version None)
Quarter: 2004Q1

REPORT INFORMATION
  Report Type: 
  Country: None (occurrence: None)
  Receive Date: 20040107
  Receipt Date: 20031223
  Transmission Date: 20041129
  Serious: Yes (Death, Hospitalization)
  Sender: FDA-Public Use
  Company Number: A02200303523

PATIENT
  Age: 82 Year
  Sex: Male

DRUGS (14)
  1. PLAVIX - (CLOPIDOGREL SULFATE) - TABLET - 74 MG [Suspect]
     Dosage: ORAL
     Route: 048
     Dates: end: 20030615
  2. EFFERALGAN CODEINE - (PARACETAMOL/CODEINE) - TABLET [Suspect]
     Indication: BRONCHITIS CHRONIC
     Dosage: 500 MG}QID, ORAL
     Route: 048
     Dates: start: 20031108
  3. PARACETAMOL 500 MG [Suspect]
     Dosage: SEE IMAGE
     Route: 048
     Dates: end: 20031115
  4. HEXAQUINE (QUININE/THIAMINE) [Suspect]
     Dosage: ORAL
     Route: 048
     Dates: start: 20031108
  5. CIBLOR (AMOXICILLIN/CLAVULANIC ACID) - TABLET - [Suspect]
     Indication: SUPERINFECTION
     Dosage: 2 DF BID, ORAL
     Route: 048
     Dates: start: 20031106, end: 20031108
  6. ADANCOR (NICORANDIL) [Concomitant]
  7. CARDIOCOR (BISOPROLOL FUMARATE) [Concomitant]
  8. CORVASAL (MOLSIDOMINE) [Concomitant]
  9. ZOCOR [Concomitant]
  10. OMIX (TAMSULOSIN HYDROCHLORIDE) [Concomitant]
  11. VASTAREL (TRIMETAZIDINE HYDROCHLORIDE) [Concomitant]
  12. FONZYLANE (BUFLOMEDIL HYDROCHLORIDE) [Concomitant]
  13. STABLON (TIANEPTINE) [Concomitant]
  14. DI-ANTALVIC (PARACETAMOL/DEXTROPROPOXYPHENE) [Concomitant]

REACTIONS (9)
  - ACUTE CORONARY SYNDROME [None]
  - ANURIA [None]
  - AZOTAEMIA [None]
  - BRONCHITIS CHRONIC [None]
  - HAEMATURIA [None]
  - NORMOCHROMIC NORMOCYTIC ANAEMIA [None]
  - OVERDOSE [None]
  - SUPERINFECTION [None]
  - THROMBOCYTOPENIA [None]
